FAERS Safety Report 5525309-X (Version None)
Quarter: 2007Q4

REPORT INFORMATION
  Report Type: 
  Country: None (occurrence: None)
  Receive Date: 20071126
  Receipt Date: 20060706
  Transmission Date: 20080405
  Serious: Yes (Hospitalization, Other)
  Sender: FDA-Public Use
  Company Number: US-ASTRAZENECA-2006UW14368

PATIENT
  Age: 17236 Day
  Sex: Male
  Weight: 86.4 kg

DRUGS (24)
  1. SEROQUEL [Suspect]
     Indication: AFFECTIVE DISORDER
     Dosage: 25-50 MG HS + 25 MG BID PRN
     Route: 048
     Dates: start: 20041206
  2. SEROQUEL [Suspect]
     Indication: BIPOLAR DISORDER
     Dosage: 25-50 MG HS + 25 MG BID PRN
     Route: 048
     Dates: start: 20041206
  3. SEROQUEL [Suspect]
     Route: 048
     Dates: start: 20051103, end: 20051215
  4. SEROQUEL [Suspect]
     Route: 048
     Dates: start: 20051103, end: 20051215
  5. SERTRALINE [Concomitant]
     Dates: start: 19991025
  6. SERTRALINE [Concomitant]
     Dates: start: 20020829
  7. LORAZEPAM [Concomitant]
     Indication: ANXIETY
     Dosage: Q4 HRS PRN
     Dates: start: 19991025
  8. LORAZEPAM [Concomitant]
     Dates: start: 20020829
  9. TRAZODONE HCL [Concomitant]
     Dates: start: 19991025
  10. TRAZODONE HCL [Concomitant]
     Dates: start: 20020829
  11. HYDROCODONE BITARTRATE [Concomitant]
     Indication: BACK PAIN
  12. ZETIA [Concomitant]
     Indication: BLOOD CHOLESTEROL
     Route: 048
  13. FEXOFENADINE HCL [Concomitant]
     Indication: MULTIPLE ALLERGIES
     Route: 048
  14. HYDROCHLOROTHIAZIDE [Concomitant]
     Indication: BLOOD PRESSURE
     Route: 048
  15. MULTI-VITAMIN [Concomitant]
  16. PAROXETIENE HCL [Concomitant]
     Indication: AFFECTIVE DISORDER
     Route: 048
  17. PRAVASTATIN SODIUM [Concomitant]
     Indication: BLOOD CHOLESTEROL
     Route: 048
  18. RANITIDINE HCL [Concomitant]
     Indication: GASTRIC DISORDER
     Route: 048
  19. HALDOL [Concomitant]
     Dosage: 5 MG EVERY THREE HOURS
     Dates: start: 20051018, end: 20051028
  20. RISPERDAL [Concomitant]
     Dates: start: 20051003, end: 20051103
  21. BUPROPION HCL [Concomitant]
     Dates: start: 20021002, end: 20021018
  22. MIRTAZAPINE [Concomitant]
  23. FLUOXETINE [Concomitant]
  24. SERZONE [Concomitant]

REACTIONS (26)
  - BLOOD GLUCOSE INCREASED [None]
  - BLOOD POTASSIUM DECREASED [None]
  - DELIRIUM [None]
  - DEMENTIA [None]
  - DIABETIC HYPEROSMOLAR COMA [None]
  - ELECTROLYTE IMBALANCE [None]
  - ENCEPHALOPATHY [None]
  - HYPERGLYCAEMIA [None]
  - HYPERLIPIDAEMIA [None]
  - HYPOMAGNESAEMIA [None]
  - ISCHAEMIA [None]
  - METABOLIC ACIDOSIS [None]
  - NAUSEA [None]
  - NEUROLEPTIC MALIGNANT SYNDROME [None]
  - PANCREATITIS [None]
  - PANCREATITIS ACUTE [None]
  - PELVIC FLUID COLLECTION [None]
  - PERITONEAL EFFUSION [None]
  - PLEURAL EFFUSION [None]
  - PNEUMONIA [None]
  - PYREXIA [None]
  - RENAL FAILURE ACUTE [None]
  - RENAL TUBULAR NECROSIS [None]
  - RESPIRATORY FAILURE [None]
  - TYPE 2 DIABETES MELLITUS [None]
  - VOMITING [None]
